FAERS Safety Report 9720267 (Version 1)
Quarter: 2013Q4

REPORT INFORMATION
  Report Type: Report from Study
  Country: US (occurrence: US)
  Receive Date: 20131129
  Receipt Date: 20131129
  Transmission Date: 20140711
  Serious: Yes (Other)
  Sender: FDA-Public Use
  Company Number: US-ROCHE-1306810

PATIENT
  Sex: 0

DRUGS (5)
  1. BEVACIZUMAB [Suspect]
     Indication: COLORECTAL CANCER METASTATIC
     Route: 065
  2. IRINOTECAN [Suspect]
     Indication: COLORECTAL CANCER METASTATIC
     Dosage: OVER 90 MINS
     Route: 042
  3. LEUCOVORIN [Suspect]
     Indication: COLORECTAL CANCER METASTATIC
     Dosage: OR 200 MG/M2 OF L-LEUCOVORIN VIA SEPARATE INFUION LINES OVER 120 MINS.
     Route: 042
  4. 5-FLUOROURACIL [Suspect]
     Indication: COLORECTAL CANCER METASTATIC
     Dosage: AFTER IRINOTECAN /LEUCOVORIN.
     Route: 040
  5. 5-FLUOROURACIL [Suspect]
     Dosage: CONTINUOUS OVER 46 TO 48 HOURS.
     Route: 042

REACTIONS (12)
  - Hypertension [Unknown]
  - Diarrhoea [Unknown]
  - Nausea [Unknown]
  - Vomiting [Unknown]
  - Fatigue [Unknown]
  - Neutropenia [Unknown]
  - Asthenia [Unknown]
  - Mucosal inflammation [Unknown]
  - Abdominal pain [Unknown]
  - Anaemia [Unknown]
  - Thrombocytopenia [Unknown]
  - Neuropathy peripheral [Unknown]
